FAERS Safety Report 8490651 (Version 4)
Quarter: 2013Q2

REPORT INFORMATION
  Report Type: Spontaneous
  Country: US (occurrence: None)
  Receive Date: 20120316
  Receipt Date: 20120713
  Transmission Date: 20140414
  Serious: No
  Sender: FDA-Public Use
  Company Number: PHHY2011US44210

PATIENT
  Age: 54 Year
  Sex: Male
  Weight: 125.2 kg

DRUGS (1)
  1. ILARIS [Suspect]
     Dosage: 150 MG, EVERY 8 WEEKS
     Route: 058
     Dates: start: 20110106, end: 20110517

REACTIONS (2)
  - PYREXIA [None]
  - DRUG INEFFECTIVE [None]
